FAERS Safety Report 23534246 (Version 1)
Quarter: 2024Q1

REPORT INFORMATION
  Report Type: Report from Study
  Country: CH (occurrence: CH)
  Receive Date: 20240216
  Receipt Date: 20240216
  Transmission Date: 20240410
  Serious: Yes (Hospitalization)
  Sender: FDA-Public Use
  Company Number: CH-ABBVIE-5639276

PATIENT
  Age: 75 Year
  Sex: Male

DRUGS (5)
  1. CARBIDOPA\LEVODOPA [Suspect]
     Active Substance: CARBIDOPA\LEVODOPA
     Indication: Parkinson^s disease
     Dosage: MD: 7.0ML/, CRD: 3.3ML/H, ED: 1.00ML,?FREQUENCY TEXT: 16H THERAPY
     Route: 050
     Dates: start: 20230720, end: 20230727
  2. CARBIDOPA\LEVODOPA [Suspect]
     Active Substance: CARBIDOPA\LEVODOPA
     Dosage: MD: 7.0ML/, CRD: 3.3ML/H, ED: 1.00ML,?FREQUENCY TEXT: 16H THERAPY
     Route: 050
     Dates: start: 20230727, end: 20231024
  3. CARBIDOPA\LEVODOPA [Suspect]
     Active Substance: CARBIDOPA\LEVODOPA
     Route: 050
     Dates: start: 20180628
  4. CARBIDOPA\LEVODOPA [Suspect]
     Active Substance: CARBIDOPA\LEVODOPA
     Dosage: MD: 7.0ML/, CRD: 3.3ML/H, ED: 1.00ML, CRN: 2.0ML/H?FREQUENCY TEXT: 24H THERAPY
     Route: 050
     Dates: start: 20231031
  5. CARBIDOPA\LEVODOPA [Suspect]
     Active Substance: CARBIDOPA\LEVODOPA
     Dosage: MD: 5.0ML/, CRD: 3.3ML/H, ED: 1.00ML, CRN: 2.0ML/H?FREQUENCY TEXT: 24H THERAPY
     Route: 050
     Dates: start: 20231024, end: 20231031

REACTIONS (4)
  - Influenza [Not Recovered/Not Resolved]
  - Device occlusion [Recovered/Resolved]
  - Enteral nutrition [Not Recovered/Not Resolved]
  - Wrong technique in product usage process [Recovered/Resolved]

NARRATIVE: CASE EVENT DATE: 20240213
